FAERS Safety Report 12229506 (Version 1)
Quarter: 2016Q2

REPORT INFORMATION
  Report Type: Spontaneous
  Country: GB (occurrence: GB)
  Receive Date: 20160401
  Receipt Date: 20160401
  Transmission Date: 20160815
  Serious: Yes (Other)
  Sender: FDA-Public Use
  Company Number: GB-BAYER-2016-061702

PATIENT
  Age: 55 Year
  Sex: Female
  Weight: 67 kg

DRUGS (3)
  1. GADOVIST 1.0 MMOL/ML SOLUTION FOR INJECTION [Suspect]
     Active Substance: GADOBUTROL
     Indication: NUCLEAR MAGNETIC RESONANCE IMAGING ABDOMINAL
     Dosage: 1.0 MMOL, UNK
     Route: 042
     Dates: start: 20160317, end: 20160317
  2. FEMOSTON [Concomitant]
     Active Substance: DYDROGESTERONE\ESTRADIOL
  3. RHUS TOXICODENDRON [Concomitant]

REACTIONS (7)
  - Pruritus [Unknown]
  - Feeling hot [Recovered/Resolved]
  - Nausea [Unknown]
  - Tachycardia [Recovered/Resolved]
  - Sensory disturbance [Recovered/Resolved]
  - Injection site coldness [Unknown]
  - Nasal congestion [Recovered/Resolved]

NARRATIVE: CASE EVENT DATE: 20160317
